FAERS Safety Report 8312049-7 (Version None)
Quarter: 2012Q2

REPORT INFORMATION
  Report Type: 
  Country: None (occurrence: None)
  Receive Date: 20120425
  Receipt Date: 20120413
  Transmission Date: 20120825
  Serious: Yes (Other)
  Sender: FDA-Public Use
  Company Number: US-ELI_LILLY_AND_COMPANY-US201204004764

PATIENT
  Sex: Female
  Weight: 60.771 kg

DRUGS (8)
  1. PROZAC [Suspect]
     Dosage: 10 MG, QD
  2. PREMARIN [Concomitant]
     Dosage: 0.3 MG, QD
     Route: 048
     Dates: start: 20080101
  3. PROZAC [Suspect]
     Dosage: 10 MG, QD
     Dates: start: 20110101
  4. PREVACID [Concomitant]
     Indication: GASTROOESOPHAGEAL REFLUX DISEASE
     Dosage: 30 MG, QD
     Route: 048
  5. PREMARIN [Concomitant]
     Indication: VAGINAL DISORDER
     Dosage: UNK, QD
     Route: 048
     Dates: start: 19960101, end: 20060101
  6. PROZAC [Suspect]
     Indication: DEPRESSION
     Dosage: UNK, UNKNOWN
     Dates: start: 19910101
  7. PROZAC [Suspect]
     Dosage: 20 MG, QD
     Dates: start: 20110101
  8. PREMARIN [Concomitant]
     Dosage: 0.45 MG, QD
     Route: 048
     Dates: start: 20080101

REACTIONS (5)
  - VISION BLURRED [None]
  - SPEECH DISORDER [None]
  - DEPRESSION [None]
  - UTERINE CANCER [None]
  - VISUAL IMPAIRMENT [None]
